FAERS Safety Report 16599415 (Version 1)
Quarter: 2019Q3

REPORT INFORMATION
  Report Type: Spontaneous
  Country: NL (occurrence: DE)
  Receive Date: 20190719
  Receipt Date: 20190719
  Transmission Date: 20191004
  Serious: Yes (Hospitalization)
  Sender: FDA-Public Use
  Company Number: DE-FRESENIUS KABI-FK201907864

PATIENT
  Age: 55 Year
  Sex: Male
  Weight: 60 kg

DRUGS (6)
  1. LEUCOVORIN CALCIUM (MANUFACTURER UNKNOWN) [Suspect]
     Active Substance: LEUCOVORIN CALCIUM
     Indication: PRODUCT USED FOR UNKNOWN INDICATION
     Dosage: AM 24.11.2017, INJEKTIONS-/INFUSIONSL?SUNG
     Route: 042
  2. DOCETAXEL. [Suspect]
     Active Substance: DOCETAXEL
     Indication: PRODUCT USED FOR UNKNOWN INDICATION
     Dosage: AM 24.11.2017, INJEKTIONS-/INFUSIONSL?SUNG
     Route: 042
  3. LOPERAMIDE [Concomitant]
     Active Substance: LOPERAMIDE
     Indication: PRODUCT USED FOR UNKNOWN INDICATION
     Dosage: 2 MG, TABLETTEN
     Route: 048
  4. OXALIPLATIN (MANUFACTURER UNKNOWN) [Suspect]
     Active Substance: OXALIPLATIN
     Indication: PRODUCT USED FOR UNKNOWN INDICATION
     Dosage: AM 24.11.2017, INJEKTIONS-/INFUSIONSL?SUNG
     Route: 042
  5. FLUOROURACIL. [Suspect]
     Active Substance: FLUOROURACIL
     Indication: PRODUCT USED FOR UNKNOWN INDICATION
     Dosage: AM 24.11.2017, INJEKTIONS-/INFUSIONSL?SUNG
     Route: 042
  6. OMEPRAZOLE. [Concomitant]
     Active Substance: OMEPRAZOLE
     Indication: PRODUCT USED FOR UNKNOWN INDICATION
     Dosage: 20 MG, 1-0-1, TABLETTEN
     Route: 048

REACTIONS (3)
  - Dehydration [Unknown]
  - Asthenia [Unknown]
  - Diarrhoea [Unknown]
